FAERS Safety Report 12762829 (Version 1)
Quarter: 2016Q3

REPORT INFORMATION
  Report Type: Spontaneous
  Country: AU (occurrence: AU)
  Receive Date: 20160920
  Receipt Date: 20160920
  Transmission Date: 20161109
  Serious: Yes (Other)
  Sender: FDA-Public Use
  Company Number: AU-SA-2016SA171117

PATIENT
  Age: 25 Year
  Sex: Male

DRUGS (4)
  1. RABIES VACCINE [Suspect]
     Active Substance: RABIES VACCINE
     Indication: IMMUNISATION
     Route: 065
     Dates: start: 20160813, end: 20160813
  2. HUMAN RABIES IMMUNOGLOBULIN [Suspect]
     Active Substance: RABIES IMMUNE GLOBULIN (HUMAN)
     Indication: ANIMAL BITE
     Route: 065
     Dates: start: 20160810, end: 20160810
  3. DIPHTHERIA TOXOID/TETANUS TOXOID [Suspect]
     Active Substance: DIPHTHERIA AND TETANUS TOXOIDS
     Indication: IMMUNISATION
     Route: 065
     Dates: start: 20160809, end: 20160809
  4. RABIES VACCINE [Suspect]
     Active Substance: RABIES VACCINE
     Indication: IMMUNISATION
     Route: 065
     Dates: start: 20160810, end: 20160810

REACTIONS (3)
  - Rash [Not Recovered/Not Resolved]
  - Irritability [Not Recovered/Not Resolved]
  - Urticaria [Not Recovered/Not Resolved]

NARRATIVE: CASE EVENT DATE: 20160817
